FAERS Safety Report 23634130 (Version 1)
Quarter: 2024Q1

REPORT INFORMATION
  Report Type: Spontaneous
  Country: GB (occurrence: CZ)
  Receive Date: 20240314
  Receipt Date: 20240314
  Transmission Date: 20240410
  Serious: Yes (Life-Threatening, Hospitalization, Other)
  Sender: FDA-Public Use
  Company Number: None

PATIENT

DRUGS (6)
  1. LATUDA [Suspect]
     Active Substance: LURASIDONE HYDROCHLORIDE
     Indication: Schizophrenia
     Dosage: 111 MG, QD (0-1-0 WITH MEAL)
     Route: 048
     Dates: start: 20240202, end: 20240218
  2. JOX [Concomitant]
     Indication: Oropharyngeal pain
     Dosage: 1 DF, 8 HR/TID (1-1-1)
     Route: 050
     Dates: start: 20240213, end: 20240218
  3. AKINETON [Concomitant]
     Active Substance: BIPERIDEN HYDROCHLORIDE
     Indication: Akathisia
     Dosage: 2 MG, 1 D/QD (1-0-0)
     Route: 050
     Dates: start: 20240209, end: 20240226
  4. RIVOTRIL [Concomitant]
     Active Substance: CLONAZEPAM
     Indication: Restlessness
     Dosage: 0.5 MG 1-1-0-2 (LAST DOSE AT 9 P.M.)
     Route: 050
     Dates: start: 20240209, end: 20240226
  5. QUETIAPINE FUMARATE [Concomitant]
     Active Substance: QUETIAPINE FUMARATE
     Indication: Schizophrenia
     Dosage: 25 MG 1-1-2 (1 TABLET CONTAINS 25MG OF ACTIVE SUBSTANCE)
     Route: 050
     Dates: start: 20240213, end: 20240215
  6. Stoptussin [Concomitant]
     Indication: Cough
     Dosage: 40 GTT 40-40-40 DROPS
     Route: 050
     Dates: start: 20240214, end: 20240216

REACTIONS (5)
  - Bronchitis [Unknown]
  - Thrombocytosis [Recovered/Resolved]
  - Tonsillitis [Unknown]
  - Neutropenia [Recovered/Resolved]
  - Leukopenia [Recovered/Resolved]

NARRATIVE: CASE EVENT DATE: 20240215
